FAERS Safety Report 8257192-6 (Version None)
Quarter: 2012Q2

REPORT INFORMATION
  Report Type: 
  Country: None (occurrence: None)
  Receive Date: 20120403
  Receipt Date: 20120329
  Transmission Date: 20120825
  Serious: Yes (Hospitalization)
  Sender: FDA-Public Use
  Company Number: FR-GE HEALTHCARE MEDICAL DIAGNOSTICS-VISP-NO-1204S-0137

PATIENT
  Age: 59 Year
  Sex: Female

DRUGS (3)
  1. NEURONTIN [Concomitant]
  2. PAROXETINE HYDROCHLORIDE [Concomitant]
  3. VISIPAQUE [Suspect]
     Indication: HEADACHE
     Route: 042
     Dates: start: 20120222, end: 20120222

REACTIONS (3)
  - ANGIOEDEMA [None]
  - DERMATITIS BULLOUS [None]
  - RASH [None]
